FAERS Safety Report 21192963 (Version 1)
Quarter: 2022Q3

REPORT INFORMATION
  Report Type: Spontaneous
  Country: DE (occurrence: DE)
  Receive Date: 20220810
  Receipt Date: 20220810
  Transmission Date: 20221027
  Serious: Yes (Death, Life-Threatening, Hospitalization, Other)
  Sender: FDA-Public Use
  Company Number: DE-CELLTRION INC.-2022DE012427

PATIENT

DRUGS (26)
  1. RITUXIMAB [Suspect]
     Active Substance: RITUXIMAB
     Indication: Diffuse large B-cell lymphoma
     Dosage: SIX CYCLES OF RITUXIMAB, CYCLOPHOSPHAMIDE, HYDROXYDAUNORUBICIN, VINCRISTINE, AND PREDNISOLONE (R-CHO
  2. RITUXIMAB [Suspect]
     Active Substance: RITUXIMAB
     Indication: Angioimmunoblastic T-cell lymphoma
     Dosage: SIX CYCLES OF RITUXIMAB, CYCLOPHOSPHAMIDE, HYDROXYDAUNORUBICIN, VINCRISTINE, AND PREDNISOLONE (R-CHO
  3. RITUXIMAB [Suspect]
     Active Substance: RITUXIMAB
     Indication: Epstein-Barr virus test negative
     Dosage: SIX CYCLES OF RITUXIMAB, CYCLOPHOSPHAMIDE, HYDROXYDAUNORUBICIN, VINCRISTINE, AND PREDNISOLONE (R-CHO
  4. RITUXIMAB [Suspect]
     Active Substance: RITUXIMAB
     Dosage: SIX CYCLES OF RITUXIMAB, CYCLOPHOSPHAMIDE, HYDROXYDAUNORUBICIN, VINCRISTINE, AND PREDNISOLONE (R-CHO
  5. RITUXIMAB [Suspect]
     Active Substance: RITUXIMAB
     Dosage: SIX CYCLES OF RITUXIMAB, CYCLOPHOSPHAMIDE, HYDROXYDAUNORUBICIN, VINCRISTINE, AND PREDNISOLONE (R-CHO
  6. RITUXIMAB [Suspect]
     Active Substance: RITUXIMAB
     Dosage: SIX CYCLES OF RITUXIMAB, CYCLOPHOSPHAMIDE, HYDROXYDAUNORUBICIN, VINCRISTINE, AND PREDNISOLONE (R-CHO
  7. RITUXIMAB [Suspect]
     Active Substance: RITUXIMAB
     Dosage: FOLLOWED BY TWO CYCLES OF RITUXIMAB
  8. RITUXIMAB [Suspect]
     Active Substance: RITUXIMAB
     Dosage: FOLLOWED BY TWO CYCLES OF RITUXIMAB
  9. RITUXIMAB [Suspect]
     Active Substance: RITUXIMAB
     Dosage: THERAPY WITH RITUXIMAB, DEXAMETHASONE, CYTARABINE, AND CISPLATIN (R-DHAP) WAS INITIATED.
  10. RITUXIMAB [Suspect]
     Active Substance: RITUXIMAB
     Dosage: THERAPY WITH RITUXIMAB, DEXAMETHASONE, CYTARABINE, AND CISPLATIN (R-DHAP) WAS INITIATED.
  11. CYCLOPHOSPHAMIDE\DOXORUBICIN\PREDNISONE\VINCRISTINE [Suspect]
     Active Substance: CYCLOPHOSPHAMIDE\DOXORUBICIN\PREDNISONE\VINCRISTINE
     Indication: Diffuse large B-cell lymphoma
     Dosage: SIX CYCLES OF RITUXIMAB, CYCLOPHOSPHAMIDE, HYDROXYDAUNORUBICIN, VINCRISTINE, AND PREDNISOLONE (R-CHO
  12. CYCLOPHOSPHAMIDE\DOXORUBICIN\PREDNISONE\VINCRISTINE [Suspect]
     Active Substance: CYCLOPHOSPHAMIDE\DOXORUBICIN\PREDNISONE\VINCRISTINE
     Dosage: SIX CYCLES OF RITUXIMAB, CYCLOPHOSPHAMIDE, HYDROXYDAUNORUBICIN, VINCRISTINE, AND PREDNISOLONE (R-CHO
  13. CYCLOPHOSPHAMIDE\DOXORUBICIN\PREDNISONE\VINCRISTINE [Suspect]
     Active Substance: CYCLOPHOSPHAMIDE\DOXORUBICIN\PREDNISONE\VINCRISTINE
     Dosage: SIX CYCLES OF RITUXIMAB, CYCLOPHOSPHAMIDE, HYDROXYDAUNORUBICIN, VINCRISTINE, AND PREDNISOLONE (R-CHO
  14. CYCLOPHOSPHAMIDE\DOXORUBICIN\PREDNISONE\VINCRISTINE [Suspect]
     Active Substance: CYCLOPHOSPHAMIDE\DOXORUBICIN\PREDNISONE\VINCRISTINE
     Dosage: SIX CYCLES OF RITUXIMAB, CYCLOPHOSPHAMIDE, HYDROXYDAUNORUBICIN, VINCRISTINE, AND PREDNISOLONE (R-CHO
  15. CYCLOPHOSPHAMIDE\DOXORUBICIN\PREDNISONE\VINCRISTINE [Suspect]
     Active Substance: CYCLOPHOSPHAMIDE\DOXORUBICIN\PREDNISONE\VINCRISTINE
     Dosage: SIX CYCLES OF RITUXIMAB, CYCLOPHOSPHAMIDE, HYDROXYDAUNORUBICIN, VINCRISTINE, AND PREDNISOLONE (R-CHO
  16. CYCLOPHOSPHAMIDE\DOXORUBICIN\PREDNISONE\VINCRISTINE [Suspect]
     Active Substance: CYCLOPHOSPHAMIDE\DOXORUBICIN\PREDNISONE\VINCRISTINE
     Dosage: SIX CYCLES OF RITUXIMAB, CYCLOPHOSPHAMIDE, HYDROXYDAUNORUBICIN, VINCRISTINE, AND PREDNISOLONE (R-CHO
  17. CISPLATIN\CYTARABINE\DEXAMETHASONE [Suspect]
     Active Substance: CISPLATIN\CYTARABINE\DEXAMETHASONE
     Indication: Angioimmunoblastic T-cell lymphoma
     Dosage: THERAPY WITH RITUXIMAB, DEXAMETHASONE, CYTARABINE, AND CISPLATIN (R-DHAP) WAS INITIATED.
  18. CISPLATIN\CYTARABINE\DEXAMETHASONE [Suspect]
     Active Substance: CISPLATIN\CYTARABINE\DEXAMETHASONE
     Indication: Diffuse large B-cell lymphoma
     Dosage: THERAPY WITH RITUXIMAB, DEXAMETHASONE, CYTARABINE, AND CISPLATIN (R-DHAP) WAS INITIATED.
  19. CISPLATIN\CYTARABINE\DEXAMETHASONE [Suspect]
     Active Substance: CISPLATIN\CYTARABINE\DEXAMETHASONE
     Indication: Epstein-Barr virus test negative
  20. GEMCITABINE HYDROCHLORIDE\OXALIPLATIN [Suspect]
     Active Substance: GEMCITABINE HYDROCHLORIDE\OXALIPLATIN
     Indication: Angioimmunoblastic T-cell lymphoma
     Dosage: THE CHOSEN TREATMENT REGIME WAS RITUXIMAB, GEMCITABINE, AND OXALIPLATIN (R-GEMOX); ACCORDING TO A GO
  21. GEMCITABINE HYDROCHLORIDE\OXALIPLATIN [Suspect]
     Active Substance: GEMCITABINE HYDROCHLORIDE\OXALIPLATIN
     Indication: Diffuse large B-cell lymphoma
  22. GEMCITABINE HYDROCHLORIDE\OXALIPLATIN [Suspect]
     Active Substance: GEMCITABINE HYDROCHLORIDE\OXALIPLATIN
     Indication: Epstein-Barr virus test negative
  23. CARBOPLATIN\ETOPOSIDE\IFOSFAMIDE [Suspect]
     Active Substance: CARBOPLATIN\ETOPOSIDE\IFOSFAMIDE
     Indication: Angioimmunoblastic T-cell lymphoma
     Dosage: ESCALATED TO RITUXIMAB, IFOSFAMIDE, CARBOPLATIN, AND ETOPOSIDE (R-ICE)
  24. CARBOPLATIN\ETOPOSIDE\IFOSFAMIDE [Suspect]
     Active Substance: CARBOPLATIN\ETOPOSIDE\IFOSFAMIDE
     Indication: Diffuse large B-cell lymphoma
  25. CARBOPLATIN\ETOPOSIDE\IFOSFAMIDE [Suspect]
     Active Substance: CARBOPLATIN\ETOPOSIDE\IFOSFAMIDE
     Indication: Epstein-Barr virus test negative
  26. PREDNISOLONE [Suspect]
     Active Substance: PREDNISOLONE
     Indication: Product used for unknown indication
     Dosage: 550 MG IN TOTAL, AT/SHORTLY BEFORE DETECTION OF VIREMIA

REACTIONS (12)
  - Febrile neutropenia [Fatal]
  - Sepsis [Fatal]
  - Respiratory failure [Fatal]
  - Acute hepatic failure [Unknown]
  - Renal failure [Unknown]
  - Hepatitis fulminant [Unknown]
  - Angioimmunoblastic T-cell lymphoma [Unknown]
  - Diffuse large B-cell lymphoma recurrent [Unknown]
  - Pneumonia adenoviral [Unknown]
  - Adenoviral hepatitis [Unknown]
  - Immunosuppression [Unknown]
  - Off label use [Unknown]
